FAERS Safety Report 5862499-3 (Version None)
Quarter: 2008Q3

REPORT INFORMATION
  Report Type: 
  Country: None (occurrence: None)
  Receive Date: 20080828
  Receipt Date: 20080509
  Transmission Date: 20090109
  Serious: No
  Sender: FDA-Public Use
  Company Number: US-BAYER-200822885NA

PATIENT
  Sex: Female
  Weight: 61 kg

DRUGS (1)
  1. CLIMARA [Suspect]
     Indication: HORMONE REPLACEMENT THERAPY
     Route: 062

REACTIONS (2)
  - APPLICATION SITE DERMATITIS [None]
  - APPLICATION SITE URTICARIA [None]
